FAERS Safety Report 17621998 (Version 1)
Quarter: 2020Q2

REPORT INFORMATION
  Report Type: Spontaneous
  Country: US (occurrence: US)
  Receive Date: 20200402
  Receipt Date: 20200402
  Transmission Date: 20200713
  Serious: Yes (Other)
  Sender: FDA-Public Use
  Company Number: None

PATIENT
  Sex: Female

DRUGS (15)
  1. CEFUROXIME. [Concomitant]
     Active Substance: CEFUROXIME
  2. SKYRIZI [Concomitant]
     Active Substance: RISANKIZUMAB-RZAA
  3. COSENTYX [Suspect]
     Active Substance: SECUKINUMAB
     Indication: PSORIASIS
     Dosage: 2 PENS    OTHER FREQUENCY:EVERY 4 WEEKS;?
     Route: 058
     Dates: start: 20160706
  4. OMEPRAZOLE. [Concomitant]
     Active Substance: OMEPRAZOLE
  5. CETRIZINE [Concomitant]
     Active Substance: CETIRIZINE HYDROCHLORIDE
  6. MULTIPLE VIT [Concomitant]
  7. BENZONATATE. [Concomitant]
     Active Substance: BENZONATATE
  8. LISINOPRIL. [Concomitant]
     Active Substance: LISINOPRIL
  9. PROAIR HFA [Concomitant]
     Active Substance: ALBUTEROL SULFATE
  10. ALENDRONATE [Concomitant]
     Active Substance: ALENDRONATE SODIUM
  11. AMOX/K CLAV [Concomitant]
     Active Substance: AMOXICILLIN\CLAVULANATE POTASSIUM
  12. METHADONE [Concomitant]
     Active Substance: METHADONE HYDROCHLORIDE
  13. ADVAIR DISKU [Concomitant]
  14. OXYCODONE [Concomitant]
     Active Substance: OXYCODONE
  15. SINGULAIR [Concomitant]
     Active Substance: MONTELUKAST SODIUM

REACTIONS (3)
  - Condition aggravated [None]
  - Rash [None]
  - Pain [None]
